FAERS Safety Report 20188570 (Version 9)
Quarter: 2024Q1

REPORT INFORMATION
  Report Type: Spontaneous
  Country: US (occurrence: US)
  Receive Date: 20211215
  Receipt Date: 20240129
  Transmission Date: 20240410
  Serious: Yes (Other)
  Sender: FDA-Public Use
  Company Number: US-PFIZER INC-2021092098

PATIENT
  Age: 83 Year
  Sex: Female
  Weight: 58.957 kg

DRUGS (3)
  1. PREMARIN [Suspect]
     Active Substance: ESTROGENS, CONJUGATED
     Dosage: 2 G, 2X/WEEK (INSERT 1 APPLICATION(S) TWICE A WEEK BY VAGINAL ROUTE FOR 90 DAYS)
     Route: 067
  2. PREMARIN [Suspect]
     Active Substance: ESTROGENS, CONJUGATED
     Dosage: 2 G, WEEKLY (INSERT ONE APPLICATION ONCE A WEEK)
     Route: 067
  3. PREMARIN [Suspect]
     Active Substance: ESTROGENS, CONJUGATED
     Dosage: 3 OR 4 TIMES A WEEK
     Route: 067

REACTIONS (25)
  - Cardiomyopathy [Unknown]
  - Chronic kidney disease [Unknown]
  - Arteriosclerosis coronary artery [Unknown]
  - Carotid artery stenosis [Unknown]
  - Type 2 diabetes mellitus [Unknown]
  - Acute myocardial infarction [Unknown]
  - Hypothyroidism [Unknown]
  - Thyroid mass [Unknown]
  - Rheumatoid arthritis [Unknown]
  - Left ventricular failure [Unknown]
  - Hyperlipidaemia [Unknown]
  - Overweight [Unknown]
  - Hypertensive heart disease [Unknown]
  - Aortic valve stenosis [Unknown]
  - Asthma [Unknown]
  - Chronic obstructive pulmonary disease [Unknown]
  - Asthma exercise induced [Unknown]
  - Lumbosacral radiculopathy [Unknown]
  - Spinal osteoarthritis [Unknown]
  - Metabolic syndrome [Unknown]
  - Diabetic nephropathy [Unknown]
  - Ventricular extrasystoles [Unknown]
  - Renal disorder [Unknown]
  - Product prescribing error [Unknown]
  - Off label use [Unknown]
